FAERS Safety Report 6052284-4 (Version None)
Quarter: 2009Q1

REPORT INFORMATION
  Report Type: 
  Country: None (occurrence: None)
  Receive Date: 20090126
  Receipt Date: 20090114
  Transmission Date: 20090719
  Serious: Yes (Other)
  Sender: FDA-Public Use
  Company Number: GB-GILEAD-2008-0019253

PATIENT

DRUGS (1)
  1. TRUVADA [Suspect]

REACTIONS (3)
  - CSF VIRUS IDENTIFIED [None]
  - GENOTYPE DRUG RESISTANCE TEST POSITIVE [None]
  - NEUROLOGICAL SYMPTOM [None]
